APPROVED DRUG PRODUCT: DAPTOMYCIN
Active Ingredient: DAPTOMYCIN
Strength: 500MG/VIAL
Dosage Form/Route: POWDER;INTRAVENOUS
Application: A213966 | Product #001 | TE Code: AP
Applicant: MYLAN PHARMACEUTICALS INC A VIATRIS CO
Approved: Aug 7, 2023 | RLD: No | RS: No | Type: RX